FAERS Safety Report 25448696 (Version 1)
Quarter: 2025Q2

REPORT INFORMATION
  Report Type: Spontaneous
  Country: ES (occurrence: ES)
  Receive Date: 20250618
  Receipt Date: 20250618
  Transmission Date: 20250716
  Serious: Yes (Hospitalization)
  Sender: BOEHRINGER INGELHEIM
  Company Number: ES-BoehringerIngelheim-2025-BI-076382

PATIENT
  Age: 70 Year
  Sex: Female

DRUGS (13)
  1. NINTEDANIB [Suspect]
     Active Substance: NINTEDANIB
     Indication: Interstitial lung disease
     Dosage: TEMPORARY STOPPAGE FOR ONE WEEK
     Dates: start: 202312, end: 202405
  2. NINTEDANIB [Suspect]
     Active Substance: NINTEDANIB
     Dates: start: 202405, end: 202406
  3. NINTEDANIB [Suspect]
     Active Substance: NINTEDANIB
     Dates: start: 202406
  4. NINTEDANIB [Suspect]
     Active Substance: NINTEDANIB
  5. RITUXIMAB [Concomitant]
     Active Substance: RITUXIMAB
     Indication: Anti-neutrophil cytoplasmic antibody positive vasculitis
     Dosage: INDUCTION AND MAINTENANCE WITH 500 MG EVERY 6 MONTHS APPROXIMATELY
     Dates: start: 201511, end: 202101
  6. RITUXIMAB [Concomitant]
     Active Substance: RITUXIMAB
  7. PREDNISONE [Concomitant]
     Active Substance: PREDNISONE
     Indication: Product used for unknown indication
  8. OLODATEROL\TIOTROPIUM [Concomitant]
     Active Substance: OLODATEROL\TIOTROPIUM
     Indication: Product used for unknown indication
  9. ATORVASTATIN\EZETIMIBE [Concomitant]
     Active Substance: ATORVASTATIN\EZETIMIBE
     Indication: Product used for unknown indication
  10. LEVOTHYROXINE [Concomitant]
     Active Substance: LEVOTHYROXINE
     Indication: Product used for unknown indication
  11. CALCIUM [Concomitant]
     Active Substance: CALCIUM
     Indication: Product used for unknown indication
  12. VITAMIN D [Concomitant]
     Active Substance: VITAMIN D NOS
     Indication: Product used for unknown indication
  13. OMEPRAZOLE [Concomitant]
     Active Substance: OMEPRAZOLE
     Indication: Product used for unknown indication

REACTIONS (2)
  - Diarrhoea [Recovering/Resolving]
  - Asthenia [Unknown]

NARRATIVE: CASE EVENT DATE: 20240501
